FAERS Safety Report 14083570 (Version 1)
Quarter: 2017Q4

REPORT INFORMATION
  Report Type: Spontaneous
  Country: BR (occurrence: BR)
  Receive Date: 20171013
  Receipt Date: 20171013
  Transmission Date: 20180321
  Serious: Yes (Other)
  Sender: FDA-Public Use
  Company Number: BR-B.I. PHARMACEUTICALS,INC./RIDGEFIELD-2017-BI-054640

PATIENT
  Age: 23 Year
  Sex: Female
  Weight: 80 kg

DRUGS (3)
  1. BEROTEC [Suspect]
     Active Substance: FENOTEROL HYDROBROMIDE
     Indication: PRODUCT USED FOR UNKNOWN INDICATION
     Route: 065
     Dates: start: 20171007, end: 20171007
  2. ATROVENT [Suspect]
     Active Substance: IPRATROPIUM BROMIDE
     Indication: PRODUCT USED FOR UNKNOWN INDICATION
     Route: 065
     Dates: start: 20171007, end: 20171007
  3. CEFALEXINA [Suspect]
     Active Substance: CEPHALEXIN
     Indication: PRODUCT USED FOR UNKNOWN INDICATION
     Route: 065
     Dates: start: 20171007, end: 20171007

REACTIONS (4)
  - Hypertension [Unknown]
  - Suicide attempt [Recovered/Resolved]
  - Heart rate abnormal [Unknown]
  - Intentional overdose [Recovered/Resolved]

NARRATIVE: CASE EVENT DATE: 20171007
